FAERS Safety Report 16410556 (Version 1)
Quarter: 2019Q3

REPORT INFORMATION
  Report Type: Spontaneous
  Country: US (occurrence: US)
  Receive Date: 20190607
  Receipt Date: 20190607
  Transmission Date: 20191004
  Serious: Yes (Death)
  Sender: FDA-Public Use
  Company Number: None

PATIENT
  Sex: Male

DRUGS (4)
  1. AFINITOR [Suspect]
     Active Substance: EVEROLIMUS
     Indication: SMALL INTESTINE CARCINOMA
     Route: 048
  2. DOXAZOSIN [Concomitant]
     Active Substance: DOXAZOSIN MESYLATE
  3. OXYCODONE [Concomitant]
     Active Substance: OXYCODONE
  4. LEVOTHYROXINE. [Concomitant]
     Active Substance: LEVOTHYROXINE

REACTIONS (1)
  - Death [None]
